FAERS Safety Report 7736657-7 (Version None)
Quarter: 2011Q3

REPORT INFORMATION
  Report Type: 
  Country: None (occurrence: None)
  Receive Date: 20110908
  Receipt Date: 20110825
  Transmission Date: 20111222
  Serious: No
  Sender: FDA-Public Use
  Company Number: JP-JNJFOC-20110706687

PATIENT

DRUGS (3)
  1. FENTANYL CITRATE [Suspect]
     Route: 062
  2. FENTANYL CITRATE [Suspect]
     Indication: CANCER PAIN
     Route: 062
  3. FENTANYL CITRATE [Suspect]
     Route: 062
     Dates: start: 20110701

REACTIONS (1)
  - DRUG PRESCRIBING ERROR [None]
